FAERS Safety Report 5811376-2 (Version None)
Quarter: 2008Q3

REPORT INFORMATION
  Report Type: 
  Country: None (occurrence: None)
  Receive Date: 20080711
  Receipt Date: 20070730
  Transmission Date: 20090109
  Serious: Yes (Hospitalization)
  Sender: FDA-Public Use
  Company Number: 07H-163-0312894-00

PATIENT
  Age: 52 Year
  Sex: Female

DRUGS (3)
  1. PROMETHAZINE HCL [Suspect]
     Indication: NAUSEA
     Dates: start: 20070101
  2. PEG-INTERFERON (PEGINTERFERON ALFA-2A) [Concomitant]
  3. RIBAVIRIN [Concomitant]

REACTIONS (2)
  - DRUG INTOLERANCE [None]
  - MALAISE [None]
